FAERS Safety Report 24274730 (Version 1)
Quarter: 2024Q3

REPORT INFORMATION
  Report Type: Spontaneous
  Country: GB (occurrence: GB)
  Receive Date: 20240902
  Receipt Date: 20240902
  Transmission Date: 20241016
  Serious: Yes (Other)
  Sender: TEVA
  Company Number: GB-MHRA-TPP15209099C7436966YC1724400946143

PATIENT
  Age: 66 Year
  Sex: Male
  Weight: 83 kg

DRUGS (10)
  1. DOXYCYCLINE [Suspect]
     Active Substance: DOXYCYCLINE\DOXYCYCLINE HYCLATE
     Indication: Ill-defined disorder
     Route: 065
     Dates: start: 20240823
  2. ACYCLOVIR [Concomitant]
     Active Substance: ACYCLOVIR
     Indication: Ill-defined disorder
     Dosage: TIME INTERVAL: 0.33333333 DAYS: FOR FIVE DAYS
     Dates: start: 20240610, end: 20240615
  3. FEXOFENADINE [Concomitant]
     Active Substance: FEXOFENADINE HYDROCHLORIDE
     Indication: Ill-defined disorder
     Dosage: WHEN REQUIRED
     Dates: start: 20170915
  4. ALBUTEROL [Concomitant]
     Active Substance: ALBUTEROL
     Indication: Ill-defined disorder
     Dosage: INHALE 1-2 PUFFS  UPTO FOUR TIMES A DAY WHEN RE...
     Route: 055
     Dates: start: 20180416
  5. BECLOMETHASONE\FORMOTEROL [Concomitant]
     Active Substance: BECLOMETHASONE\FORMOTEROL
     Indication: Ill-defined disorder
     Dosage: PUFFS
     Route: 055
     Dates: start: 20181005
  6. CITALOPRAM [Concomitant]
     Active Substance: CITALOPRAM\CITALOPRAM HYDROBROMIDE
     Indication: Ill-defined disorder
     Dates: start: 20190610
  7. LANSOPRAZOLE [Concomitant]
     Active Substance: LANSOPRAZOLE
     Indication: Ill-defined disorder
     Dosage: WITH PREDNISOLONE, DURATION: 2.444 YEARS
     Dates: start: 20220314, end: 20240821
  8. DOXYCYCLINE [Concomitant]
     Active Substance: DOXYCYCLINE\DOXYCYCLINE HYCLATE
     Indication: Ill-defined disorder
     Dosage: TAKE 2 CAPSULES NOW,  THEN ONE ONCE DAILY FOR 6...,
     Dates: start: 20240724, end: 20240731
  9. SPIRIVA [Concomitant]
     Active Substance: TIOTROPIUM BROMIDE MONOHYDRATE
     Indication: Ill-defined disorder
     Dosage: PUFFS
     Route: 055
     Dates: start: 20230309
  10. PREDNISOLONE [Concomitant]
     Active Substance: PREDNISOLONE
     Indication: Ill-defined disorder
     Dosage: EACH MORNING FOR 7 DAYS, THE...,
     Dates: start: 20240724, end: 20240731

REACTIONS (1)
  - Ocular myasthenia [Recovered/Resolved]

NARRATIVE: CASE EVENT DATE: 20240823
